FAERS Safety Report 8877083 (Version 1)
Quarter: 2012Q4

REPORT INFORMATION
  Report Type: 
  Country: FR (occurrence: FR)
  Receive Date: 20121029
  Receipt Date: 20121029
  Transmission Date: 20130627
  Serious: Yes (Hospitalization)
  Sender: FDA-Public Use
  Company Number: FR-ROCHE-1148718

PATIENT
  Age: 72 Year
  Sex: Female

DRUGS (1)
  1. APRANAX [Suspect]
     Indication: OSTEOARTHRITIS
     Route: 048
     Dates: end: 20120927

REACTIONS (3)
  - Melaena [Recovered/Resolved]
  - Anaemia [Recovered/Resolved]
  - Gastric ulcer [Recovered/Resolved]
